FAERS Safety Report 5962847-X (Version None)
Quarter: 2008Q4

REPORT INFORMATION
  Report Type: 
  Country: None (occurrence: None)
  Receive Date: 20081124
  Receipt Date: 20081113
  Transmission Date: 20090506
  Serious: Yes (Hospitalization, Other)
  Sender: FDA-Public Use
  Company Number: IT-JNJFOC-20081103780

PATIENT
  Age: 16 Year
  Sex: Female

DRUGS (4)
  1. REMICADE [Suspect]
     Indication: IRIDOCYCLITIS
     Route: 042
  2. REMICADE [Suspect]
     Indication: UVEITIS
     Route: 042
  3. REMICADE [Suspect]
     Indication: JUVENILE ARTHRITIS
     Route: 042
  4. METHOTREXATE [Concomitant]
     Route: 030

REACTIONS (1)
  - OPTIC NEURITIS [None]
